FAERS Safety Report 20877108 (Version 1)
Quarter: 2022Q2

REPORT INFORMATION
  Report Type: Spontaneous
  Country: US (occurrence: US)
  Receive Date: 20220526
  Receipt Date: 20220526
  Transmission Date: 20220721
  Serious: No
  Sender: FDA-Public Use
  Company Number: US-drreddys-SPO/USA/22/0150180

PATIENT
  Age: 26 Year
  Sex: Female

DRUGS (3)
  1. ZENATANE [Suspect]
     Active Substance: ISOTRETINOIN
     Indication: Product used for unknown indication
     Dosage: RMA ISSUE DATE: 28 JANUARY 2022 07:01:20 PM, 14 MARCH 2022 01:14:31 PM AND 15 APRIL 2022 03:13:02 PM
  2. ZENATANE [Suspect]
     Active Substance: ISOTRETINOIN
     Dosage: RMA ISSUE DATE: 27 OCTOBER 2021 12:00:00 AM, 30 DECEMBER 2021 01:59:59 PM
  3. ZENATANE [Suspect]
     Active Substance: ISOTRETINOIN
     Dosage: RMA ISSUE DATE: 30 NOVEMBER 2021 12:00:00 AM

REACTIONS (2)
  - Abdominal distension [Unknown]
  - Weight increased [Unknown]
